FAERS Safety Report 24742913 (Version 1)
Quarter: 2024Q4

REPORT INFORMATION
  Report Type: Spontaneous
  Country: GB (occurrence: GB)
  Receive Date: 20241217
  Receipt Date: 20241217
  Transmission Date: 20250114
  Serious: Yes (Life-Threatening, Hospitalization, Disabling, Other)
  Sender: TEVA
  Company Number: None

PATIENT
  Age: 85 Year
  Sex: Female

DRUGS (1)
  1. BISOPROLOL [Suspect]
     Active Substance: BISOPROLOL
     Indication: Adverse drug reaction
     Dosage: 1.25MG DAILY INCREASED IN 2024 TO 2.5MG THEN REDUCED AGAIN
     Route: 065
     Dates: start: 2020

REACTIONS (3)
  - Nausea [Not Recovered/Not Resolved]
  - Weight decreased [Not Recovered/Not Resolved]
  - Rhinorrhoea [Not Recovered/Not Resolved]

NARRATIVE: CASE EVENT DATE: 20200101
